FAERS Safety Report 4715781-7 (Version None)
Quarter: 2005Q3

REPORT INFORMATION
  Report Type: 
  Country: None (occurrence: None)
  Receive Date: 20050718
  Receipt Date: 20050704
  Transmission Date: 20060218
  Serious: Yes (Disabling, Other)
  Sender: FDA-Public Use
  Company Number: GBWYE797705JUL05

PATIENT
  Sex: Female

DRUGS (4)
  1. ENBREL [Suspect]
     Indication: DRUG USE FOR UNKNOWN INDICATION
     Dosage: UNKNOWN
     Route: 065
     Dates: start: 20040401
  2. LEFLUNOMIDE [Concomitant]
  3. UNSPECIFIED ANTI-INFLAMMATORY AGENT [Concomitant]
  4. DEXTROPROPOXYPHENE HYDROCHLORIDE/PARACETAMOL [Concomitant]

REACTIONS (5)
  - CONDITION AGGRAVATED [None]
  - COUGH [None]
  - DYSPHONIA [None]
  - LETHARGY [None]
  - PHARYNGITIS [None]
